FAERS Safety Report 5930370-4 (Version None)
Quarter: 2008Q4

REPORT INFORMATION
  Report Type: 
  Country: None (occurrence: None)
  Receive Date: 20081023
  Receipt Date: 20060613
  Transmission Date: 20090506
  Serious: Yes (Hospitalization, Other)
  Sender: FDA-Public Use
  Company Number: 2006AL002170

PATIENT
  Age: 79 Year
  Sex: Female

DRUGS (2)
  1. DIGOXIN [Suspect]
     Dosage: 250 MCG, PO
     Route: 048
     Dates: start: 20060201, end: 20060510
  2. ROSIGLITAZONE [Concomitant]

REACTIONS (3)
  - BRADYCARDIA [None]
  - CONDITION AGGRAVATED [None]
  - THERAPEUTIC AGENT TOXICITY [None]
